FAERS Safety Report 9000957 (Version 2)
Quarter: 2013Q1

REPORT INFORMATION
  Report Type: Spontaneous
  Country: US (occurrence: None)
  Receive Date: 20121226
  Receipt Date: 20130111
  Transmission Date: 20140127
  Serious: Yes (Death, Hospitalization)
  Sender: FDA-Public Use
  Company Number: 2012SGN00578

PATIENT
  Age: 72 Year
  Sex: Male

DRUGS (1)
  1. ADCETRIS (BRENTUXIMAB VEDOTIN) INJECTION [Suspect]
     Indication: ANAPLASTIC LARGE-CELL LYMPHOMA
     Dosage: SINGLE
     Dates: start: 20120919, end: 20120919

REACTIONS (8)
  - Renal failure [None]
  - Dyspnoea [None]
  - Skin mass [None]
  - Mass [None]
  - Cardiac failure [None]
  - Respiratory failure [None]
  - Hepatomegaly [None]
  - Diarrhoea [None]
